FAERS Safety Report 13053672 (Version 2)
Quarter: 2017Q1

REPORT INFORMATION
  Report Type: Spontaneous
  Country: GB (occurrence: GB)
  Receive Date: 20161222
  Receipt Date: 20170206
  Transmission Date: 20170428
  Serious: Yes (Other)
  Sender: FDA-Public Use
  Company Number: GB-009507513-1611GBR006454

PATIENT
  Age: 59 Year
  Sex: Male

DRUGS (10)
  1. ALBUTEROL SULFATE. [Concomitant]
     Active Substance: ALBUTEROL SULFATE
     Indication: WHEEZING
     Dosage: INHALE 2 DOSES UP TO FOUR TIMES A DAY
     Route: 055
  2. PREGABALIN. [Concomitant]
     Active Substance: PREGABALIN
     Dosage: 1 TABLET EVERY NIGHT (ON)
  3. PRAMIPEXOLE. [Concomitant]
     Active Substance: PRAMIPEXOLE
     Dosage: ONE TABLET QDS
  4. ENTACAPONE. [Concomitant]
     Active Substance: ENTACAPONE
     Dosage: 1 TABLET TO BE TAKEN FOUR TIMES DAILY
  5. LAXIDO [Concomitant]
     Active Substance: POLYETHYLENE GLYCOL 3350\POTASSIUM CHLORIDE\SODIUM BICARBONATE\SODIUM CHLORIDE
     Indication: CONSTIPATION PROPHYLAXIS
     Dosage: 1 SACHET AS REQUIRED
     Route: 048
  6. AMANTADINE [Concomitant]
     Active Substance: AMANTADINE
     Dosage: TWO CAPSULES DAILY
  7. SINEMET CR [Concomitant]
     Active Substance: CARBIDOPA\LEVODOPA
     Indication: PARKINSON^S DISEASE
     Dosage: 1 TDS. 1 TABLET AT 2AM, 6AM  AND 10PM,
     Route: 048
  8. ACETAMINOPHEN. [Concomitant]
     Active Substance: ACETAMINOPHEN
     Dosage: 2 TABLETS QDS
     Route: 048
  9. TROSPIUM CHLORIDE. [Concomitant]
     Active Substance: TROSPIUM CHLORIDE
     Indication: BLADDER DISORDER
     Dosage: ONE CAPSULE AT NIGHT
  10. SINEMET PLUS [Suspect]
     Active Substance: CARBIDOPA\LEVODOPA
     Indication: PARKINSON^S DISEASE
     Dosage: 25/100 MG TABLET, 11 TABLETS A DAY
     Route: 048
     Dates: start: 20161108

REACTIONS (2)
  - Product use issue [Unknown]
  - Parkinson^s disease [Recovering/Resolving]

NARRATIVE: CASE EVENT DATE: 20161108
